FAERS Safety Report 9601728 (Version 1)
Quarter: 2013Q4

REPORT INFORMATION
  Report Type: Spontaneous
  Country: FR (occurrence: None)
  Receive Date: 20131002
  Receipt Date: 20131002
  Transmission Date: 20140711
  Serious: Yes (Other)
  Sender: FDA-Public Use
  Company Number: 2013P1019563

PATIENT
  Sex: 0

DRUGS (2)
  1. ENALAPRIL [Suspect]
  2. FUROSEMIDE [Suspect]

REACTIONS (2)
  - Drug interaction [None]
  - Hypotension [None]
